FAERS Safety Report 6231336-X (Version None)
Quarter: 2009Q2

REPORT INFORMATION
  Report Type: 
  Country: None (occurrence: None)
  Receive Date: 20090616
  Receipt Date: 20090601
  Transmission Date: 20091009
  Serious: Yes (Hospitalization)
  Sender: FDA-Public Use
  Company Number: JP-AMGEN-US350250

PATIENT
  Age: 69 Year
  Sex: Male

DRUGS (11)
  1. ENBREL [Suspect]
     Indication: RHEUMATOID ARTHRITIS
     Dosage: DOSE AND FREQUENCY NOT SPECIFIED
     Route: 058
     Dates: start: 20071101, end: 20071201
  2. ENBREL [Suspect]
     Dosage: DOSE AND FREQUENCY NOT SPECIFIED
     Route: 058
     Dates: start: 20090106, end: 20090306
  3. BASEN [Concomitant]
     Dosage: DOSE AND FREQUENCY NOT SPECIFIED
     Route: 048
  4. ASPIRIN [Concomitant]
     Dosage: DOSE AND FREQUENCY NOT SPECIFIED
     Route: 048
  5. ACINON [Concomitant]
     Dosage: DOSE AND FREQUENCY NOT SPECIFIED
     Route: 048
  6. LOXONIN [Concomitant]
     Dosage: DOSE AND FREQUENCY NOT SPECIFIED
     Route: 048
  7. SIGMART [Concomitant]
     Dosage: DOSE AND FREQUENCY NOT SPECIFIED
     Route: 048
  8. FOSAMAX [Concomitant]
     Dosage: DOSE AND FREQUENCY NOT SPECIFIED
     Route: 048
  9. PREDNISOLONE [Concomitant]
     Dosage: DOSE AND FREQUENCY NOT SPECIFIED
     Route: 048
  10. LIPITOR [Concomitant]
     Dosage: DOSE AND FREQUENCY NOT SPECIFIED
     Route: 048
  11. REBAMIPIDE [Concomitant]
     Dosage: DOSE AND FREQUENCY NOT SPECIFIED
     Route: 048

REACTIONS (1)
  - APLASIA PURE RED CELL [None]
